FAERS Safety Report 4318011-3 (Version None)
Quarter: 2004Q1

REPORT INFORMATION
  Report Type: 
  Country: None (occurrence: None)
  Receive Date: 20040316
  Receipt Date: 20040309
  Transmission Date: 20041129
  Serious: Yes (Hospitalization)
  Sender: FDA-Public Use
  Company Number: WAES 0403FRA00030

PATIENT
  Sex: Male

DRUGS (3)
  1. BUDESONIDE [Concomitant]
  2. SINGULAIR [Suspect]
     Indication: NASAL POLYPS
     Route: 048
     Dates: start: 20020301, end: 20030901
  3. PREDNISOLONE SODIUM METASULFOBENZOATE [Concomitant]
     Route: 048
     Dates: start: 20030201, end: 20030201

REACTIONS (2)
  - ALLERGIC GRANULOMATOUS ANGIITIS [None]
  - LYMPHOMA [None]
